FAERS Safety Report 8352396-6 (Version None)
Quarter: 2012Q2

REPORT INFORMATION
  Report Type: 
  Country: None (occurrence: None)
  Receive Date: 20120509
  Receipt Date: 20120427
  Transmission Date: 20120825
  Serious: Yes (Hospitalization, Other)
  Sender: FDA-Public Use
  Company Number: AUR-APL-2012-01917

PATIENT
  Age: 12 Year
  Sex: Female

DRUGS (1)
  1. MINOCYCLINE HCL [Suspect]
     Indication: ACNE
     Dosage: UNKNOWN

REACTIONS (12)
  - OPTIC ATROPHY [None]
  - VENOUS STENOSIS [None]
  - INTRACRANIAL PRESSURE INCREASED [None]
  - EYE HAEMORRHAGE [None]
  - VISUAL ACUITY REDUCED [None]
  - RETINAL EXUDATES [None]
  - VITH NERVE PARALYSIS [None]
  - MALAISE [None]
  - HEADACHE [None]
  - PAPILLOEDEMA [None]
  - OPTIC NERVE DISORDER [None]
  - NAUSEA [None]
